FAERS Safety Report 6745185-7 (Version None)
Quarter: 2010Q2

REPORT INFORMATION
  Report Type: 
  Country: None (occurrence: None)
  Receive Date: 20100526
  Receipt Date: 20100520
  Transmission Date: 20101027
  Serious: Yes (Hospitalization)
  Sender: FDA-Public Use
  Company Number: DKLU1062380

PATIENT
  Age: 61 Year
  Sex: Male

DRUGS (5)
  1. SABRIL [Suspect]
     Indication: COMPLEX PARTIAL SEIZURES
     Dosage: 1500 MG MILLIGRAM(S), 2 IN 1 D, ORAL, 1000 MG MILLIGRAM(S), 2 IN 1 D, ORAL
     Route: 048
     Dates: start: 20100301, end: 20100518
  2. SABRIL [Suspect]
     Indication: COMPLEX PARTIAL SEIZURES
     Dosage: 1500 MG MILLIGRAM(S), 2 IN 1 D, ORAL, 1000 MG MILLIGRAM(S), 2 IN 1 D, ORAL
     Route: 048
     Dates: start: 20100518
  3. DILANTIN [Concomitant]
  4. GABAPENTIN [Concomitant]
  5. CHOLESTROL MEDICATION (CHOLESTEROL) [Concomitant]

REACTIONS (4)
  - COMMUNICATION DISORDER [None]
  - CONFUSIONAL STATE [None]
  - DISORIENTATION [None]
  - GRAND MAL CONVULSION [None]
